FAERS Safety Report 22108955 (Version 2)
Quarter: 2023Q2

REPORT INFORMATION
  Report Type: Report from Study
  Country: US (occurrence: US)
  Receive Date: 20230317
  Receipt Date: 20230404
  Transmission Date: 20230722
  Serious: Yes (Hospitalization)
  Sender: FDA-Public Use
  Company Number: US-EXELIXIS-CABO-23059864

PATIENT
  Age: 57 Year
  Sex: Male

DRUGS (13)
  1. CABOMETYX [Suspect]
     Active Substance: CABOZANTINIB S-MALATE
     Indication: Renal cell carcinoma
     Dosage: 40 MG, QD
     Dates: start: 20230102
  2. CABOMETYX [Suspect]
     Active Substance: CABOZANTINIB S-MALATE
     Dosage: 60 MG, QD
     Dates: start: 20230128, end: 20230304
  3. KEYTRUDA [Suspect]
     Active Substance: PEMBROLIZUMAB
     Indication: Renal cell carcinoma
     Dosage: UNK UNK, Q3WEEKS
     Dates: start: 20230102
  4. KEYTRUDA [Suspect]
     Active Substance: PEMBROLIZUMAB
     Dosage: UNK UNK, Q6WEEKS
     Dates: start: 20230128
  5. ALLOPURINOL [Concomitant]
     Active Substance: ALLOPURINOL
     Dosage: UNK
  6. CLARITIN [Concomitant]
     Active Substance: LORATADINE
     Dosage: UNK
  7. FAMOTIDINE [Concomitant]
     Active Substance: FAMOTIDINE
     Dosage: UNK
  8. LOSARTAN [Concomitant]
     Active Substance: LOSARTAN
  9. VITAMINS [Concomitant]
     Active Substance: VITAMINS
  10. PLAVIX [Concomitant]
     Active Substance: CLOPIDOGREL BISULFATE
  11. SPIRONOLACTONE [Concomitant]
     Active Substance: SPIRONOLACTONE
  12. ASPIRIN [Concomitant]
     Active Substance: ASPIRIN
  13. ONDANSETRON [Concomitant]
     Active Substance: ONDANSETRON

REACTIONS (15)
  - Cholecystitis [Not Recovered/Not Resolved]
  - Bladder disorder [Not Recovered/Not Resolved]
  - Abdominal discomfort [Unknown]
  - Dysuria [Not Recovered/Not Resolved]
  - Enterocutaneous fistula [Not Recovered/Not Resolved]
  - Blood potassium increased [Not Recovered/Not Resolved]
  - Blood sodium decreased [Not Recovered/Not Resolved]
  - Taste disorder [Unknown]
  - Dry mouth [Unknown]
  - Nausea [Unknown]
  - Diarrhoea [Unknown]
  - Tongue dry [Unknown]
  - Pruritus [Unknown]
  - Dry skin [Unknown]
  - Decreased appetite [Unknown]

NARRATIVE: CASE EVENT DATE: 20230101
